FAERS Safety Report 7092934-7 (Version None)
Quarter: 2010Q4

REPORT INFORMATION
  Report Type: 
  Country: None (occurrence: None)
  Receive Date: 20101110
  Receipt Date: 20101030
  Transmission Date: 20110411
  Serious: No
  Sender: FDA-Public Use
  Company Number: US-PFIZER INC-2010138261

PATIENT
  Sex: Male
  Weight: 97.506 kg

DRUGS (1)
  1. VIAGRA [Suspect]
     Dosage: UNK
     Route: 048
     Dates: start: 20101030

REACTIONS (3)
  - EJACULATION DISORDER [None]
  - ERECTION INCREASED [None]
  - INTENTIONAL DRUG MISUSE [None]
